FAERS Safety Report 6996446-8 (Version None)
Quarter: 2010Q3

REPORT INFORMATION
  Report Type: 
  Country: None (occurrence: None)
  Receive Date: 20100918
  Receipt Date: 20090316
  Transmission Date: 20110219
  Serious: No
  Sender: FDA-Public Use
  Company Number: US-WYE-H08614609

PATIENT
  Age: 82 Year
  Sex: Female
  Weight: 61.74 kg

DRUGS (11)
  1. ALAVERT [Suspect]
     Indication: HYPERSENSITIVITY
     Route: 048
     Dates: start: 20080101, end: 20090309
  2. ATENOLOL [Concomitant]
  3. OMEPRAZOLE [Concomitant]
  4. ALENDRONATE SODIUM [Concomitant]
  5. PSEUDOEPHEDRINE HYDROCHLORIDE [Concomitant]
  6. CITALOPRAM HYDROBROMIDE [Concomitant]
  7. TYLENOL PM [Concomitant]
  8. FLUTICASONE PROPIONATE [Concomitant]
  9. POTASSIUM [Concomitant]
  10. CELEBREX [Concomitant]
  11. ACETYLSALICYLIC ACID [Concomitant]

REACTIONS (2)
  - BALANCE DISORDER [None]
  - DIZZINESS [None]
